FAERS Safety Report 23796950 (Version 1)
Quarter: 2024Q2

REPORT INFORMATION
  Report Type: Spontaneous
  Country: DE (occurrence: DE)
  Receive Date: 20240430
  Receipt Date: 20240430
  Transmission Date: 20240716
  Serious: Yes (Hospitalization, Other)
  Sender: FDA-Public Use
  Company Number: DE-DCGMA-24203163

PATIENT
  Age: 71 Year
  Sex: Female
  Weight: 97 kg

DRUGS (1)
  1. KEYTRUDA [Suspect]
     Active Substance: PEMBROLIZUMAB
     Indication: Triple negative breast cancer
     Dosage: 200 MILLIGRAM
     Route: 042
     Dates: start: 20240108, end: 20240219

REACTIONS (4)
  - Hepatic enzyme increased [Unknown]
  - Hepatic failure [Unknown]
  - Liver disorder [Unknown]
  - Coagulopathy [Unknown]

NARRATIVE: CASE EVENT DATE: 20240308
